FAERS Safety Report 6545444-7 (Version None)
Quarter: 2010Q1

REPORT INFORMATION
  Report Type: 
  Country: None (occurrence: None)
  Receive Date: 20100121
  Receipt Date: 20100114
  Transmission Date: 20100710
  Serious: Yes (Other)
  Sender: FDA-Public Use
  Company Number: GB-ALLERGAN-1000556US

PATIENT
  Age: 37 Year
  Sex: Female

DRUGS (5)
  1. BOTOX [Suspect]
     Indication: SKIN WRINKLING
     Dosage: UNK
     Dates: start: 20080311, end: 20080311
  2. BOTOX [Suspect]
     Dosage: UNK
     Dates: start: 20080625, end: 20080625
  3. BOTOX [Suspect]
     Dosage: UNK
     Dates: start: 20080929, end: 20080929
  4. BOTOX [Suspect]
     Dosage: UNK
     Dates: start: 20090330, end: 20090330
  5. BOTOX [Suspect]
     Dosage: UNK
     Dates: start: 20091002, end: 20091002

REACTIONS (17)
  - ABDOMINAL DISCOMFORT [None]
  - ALOPECIA [None]
  - ANXIETY [None]
  - ASTHENIA [None]
  - CHEST PAIN [None]
  - DIPLOPIA [None]
  - DIZZINESS [None]
  - DYSPNOEA [None]
  - FEELING ABNORMAL [None]
  - HEADACHE [None]
  - HEART RATE IRREGULAR [None]
  - HYPERSENSITIVITY [None]
  - MALAISE [None]
  - MUSCULOSKELETAL DISORDER [None]
  - NERVOUSNESS [None]
  - THROAT TIGHTNESS [None]
  - WEIGHT DECREASED [None]
